FAERS Safety Report 17030043 (Version 2)
Quarter: 2019Q4

REPORT INFORMATION
  Report Type: Spontaneous
  Country: DE (occurrence: DE)
  Receive Date: 20191114
  Receipt Date: 20191206
  Transmission Date: 20200122
  Serious: Yes (Hospitalization, Other)
  Sender: FDA-Public Use
  Company Number: DE-ASTRAZENECA-2019SF60102

PATIENT
  Age: 56 Year
  Sex: Male

DRUGS (1)
  1. FASENRA [Suspect]
     Active Substance: BENRALIZUMAB
     Indication: ASTHMA
     Route: 058
     Dates: start: 2018

REACTIONS (5)
  - Prostatic specific antigen increased [Unknown]
  - Metastasis [Unknown]
  - Anosmia [Unknown]
  - Ageusia [Unknown]
  - Prostate cancer [Unknown]
